FAERS Safety Report 11616813 (Version 2)
Quarter: 2015Q4

REPORT INFORMATION
  Report Type: Spontaneous
  Country: US (occurrence: US)
  Receive Date: 20151009
  Receipt Date: 20151009
  Transmission Date: 20160304
  Serious: Yes (Other)
  Sender: FDA-Public Use
  Company Number: US-GLAXOSMITHKLINE-US2015GSK129304

PATIENT
  Sex: Female

DRUGS (3)
  1. IMITREX [Suspect]
     Active Substance: SUMATRIPTAN\SUMATRIPTAN SUCCINATE
     Indication: PRODUCT USED FOR UNKNOWN INDICATION
  2. BETADINE [Suspect]
     Active Substance: POVIDONE-IODINE
     Indication: PRODUCT USED FOR UNKNOWN INDICATION
  3. IMURAN [Suspect]
     Active Substance: AZATHIOPRINE
     Indication: PRODUCT USED FOR UNKNOWN INDICATION

REACTIONS (3)
  - Pancreatitis [Unknown]
  - Drug hypersensitivity [Unknown]
  - Rash [Unknown]
